FAERS Safety Report 24134016 (Version 1)
Quarter: 2024Q3

REPORT INFORMATION
  Report Type: Spontaneous
  Country: US (occurrence: US)
  Receive Date: 20240724
  Receipt Date: 20240724
  Transmission Date: 20241016
  Serious: Yes (Other)
  Sender: LIGAND
  Company Number: US-LIGAND-2024-US-039821

PATIENT
  Age: 54 Year
  Sex: Female

DRUGS (7)
  1. ACYCLOVIR [Suspect]
     Active Substance: ACYCLOVIR
     Indication: Intentional overdose
     Dosage: 20 TABLETS ONCE
     Route: 048
  2. LITHIUM [Suspect]
     Active Substance: LITHIUM
     Indication: Intentional overdose
     Dosage: 180 TABLETS OF 450 MG ONCE; 450 MG BID
     Route: 048
  3. OXYCODONE [Suspect]
     Active Substance: OXYCODONE
     Indication: Intentional overdose
     Dosage: 5 TABLETS OF 5 MG
     Route: 048
  4. LAMOTRIGINE [Concomitant]
     Active Substance: LAMOTRIGINE
     Dosage: 1000 MG TWICE DAILY
  5. QUETIAPINE [Concomitant]
     Active Substance: QUETIAPINE
     Dosage: 400 MG AT NIGHT
  6. RISPERIDONE [Concomitant]
     Active Substance: RISPERIDONE
     Indication: Product used for unknown indication
     Dosage: 2 MG DAILY
  7. SERTRALINE [Concomitant]
     Active Substance: SERTRALINE HYDROCHLORIDE
     Dosage: 50 MG DAILY

REACTIONS (1)
  - Toxicity to various agents [Unknown]
